FAERS Safety Report 12779797 (Version 1)
Quarter: 2016Q3

REPORT INFORMATION
  Report Type: Spontaneous
  Country: US (occurrence: US)
  Receive Date: 20160925
  Receipt Date: 20160925
  Transmission Date: 20161109
  Serious: Yes (Other)
  Sender: FDA-Public Use
  Company Number: None

PATIENT
  Age: 20 Year
  Sex: Female
  Weight: 41.4 kg

DRUGS (5)
  1. ACID FOLIC [Concomitant]
  2. VITAMIN B12 [Concomitant]
     Active Substance: CYANOCOBALAMIN
  3. WELLBUTRIN [Suspect]
     Active Substance: BUPROPION HYDROCHLORIDE
     Indication: DEPRESSION
     Route: 048
     Dates: start: 20160830, end: 20160923
  4. VITAMINS B6 [Concomitant]
  5. CALCIUM [Concomitant]
     Active Substance: CALCIUM

REACTIONS (10)
  - Lymphadenopathy [None]
  - Hypersensitivity [None]
  - Weight decreased [None]
  - Tremor [None]
  - Nausea [None]
  - Headache [None]
  - Myalgia [None]
  - Anxiety [None]
  - Decreased appetite [None]
  - Irritability [None]

NARRATIVE: CASE EVENT DATE: 20160916
